FAERS Safety Report 16801844 (Version 2)
Quarter: 2019Q4

REPORT INFORMATION
  Report Type: Spontaneous
  Country: US (occurrence: US)
  Receive Date: 20190912
  Receipt Date: 20191227
  Transmission Date: 20200122
  Serious: No
  Sender: FDA-Public Use
  Company Number: US-SA-2019SA254635

PATIENT
  Age: 65 Year
  Sex: Female

DRUGS (1)
  1. PRALUENT [Suspect]
     Active Substance: ALIROCUMAB
     Indication: HYPERLIPIDAEMIA
     Dosage: 75 MG, QOW
     Route: 058
     Dates: start: 20190523

REACTIONS (4)
  - Injection site bruising [Unknown]
  - Weight decreased [Unknown]
  - Device operational issue [Unknown]
  - Rash [Unknown]

NARRATIVE: CASE EVENT DATE: 2019
